FAERS Safety Report 8298578 (Version 2)
Quarter: 2012Q4

REPORT INFORMATION
  Report Type: 
  Country: US (occurrence: US)
  Receive Date: 20111219
  Receipt Date: 20121026
  Transmission Date: 20130627
  Serious: Yes (Death)
  Sender: FDA-Public Use
  Company Number: US-ASTRAZENECA-2011SE49253

PATIENT
  Age: 83 Year
  Sex: Female

DRUGS (6)
  1. CRESTOR [Suspect]
     Indication: LOW DENSITY LIPOPROTEIN INCREASED
     Route: 048
     Dates: end: 20110814
  2. PLAVIX [Concomitant]
  3. ASPIRIN [Concomitant]
  4. TOREG [Concomitant]
  5. ONGLYZA [Concomitant]
  6. JANYUBIA [Concomitant]

REACTIONS (3)
  - Rhabdomyolysis [Fatal]
  - Dyspnoea [Unknown]
  - Hyperglycaemia [Unknown]
